FAERS Safety Report 8733522 (Version 3)
Quarter: 2012Q4

REPORT INFORMATION
  Report Type: 
  Country: US (occurrence: US)
  Receive Date: 20120821
  Receipt Date: 20121212
  Transmission Date: 20130627
  Serious: Yes (Other)
  Sender: FDA-Public Use
  Company Number: US-US-EMD SERONO, INC.-7154395

PATIENT
  Age: 63 Year
  Sex: Female
  Weight: 71 kg

DRUGS (3)
  1. REBIF [Suspect]
     Indication: MULTIPLE SCLEROSIS
     Route: 058
     Dates: start: 20120710, end: 201208
  2. ALPRAZOLAM [Concomitant]
     Indication: ANXIETY
  3. CITALOPRAM [Concomitant]
     Indication: DEPRESSION
     Route: 048

REACTIONS (9)
  - Tooth abscess [Recovering/Resolving]
  - Suicidal ideation [Recovering/Resolving]
  - Depression [Recovering/Resolving]
  - Presyncope [Unknown]
  - Dyspnoea [Unknown]
  - Cough [Unknown]
  - Influenza like illness [Not Recovered/Not Resolved]
  - Injection site pain [Not Recovered/Not Resolved]
  - Injection site nodule [Not Recovered/Not Resolved]
